FAERS Safety Report 9457474 (Version 1)
Quarter: 2013Q3

REPORT INFORMATION
  Report Type: Spontaneous
  Country: US (occurrence: US)
  Receive Date: 20130814
  Receipt Date: 20130814
  Transmission Date: 20140515
  Serious: Yes (Other)
  Sender: FDA-Public Use
  Company Number: US-ELI_LILLY_AND_COMPANY-US201308003202

PATIENT
  Age: 52 Year
  Sex: Female

DRUGS (1)
  1. EFFIENT [Suspect]
     Indication: STENT PLACEMENT
     Route: 048

REACTIONS (4)
  - Haemorrhage intracranial [Unknown]
  - Migraine [Unknown]
  - Headache [Unknown]
  - Visual acuity reduced [Unknown]
